FAERS Safety Report 9998036 (Version 2)
Quarter: 2014Q1

REPORT INFORMATION
  Report Type: Spontaneous
  Country: US (occurrence: US)
  Receive Date: 20140311
  Receipt Date: 20140311
  Transmission Date: 20141002
  Serious: Yes (Congenital Anomaly, Other)
  Sender: FDA-Public Use
  Company Number: US-ABBVIE-04P-163-0280647-00

PATIENT
  Age: 0 Day
  Sex: Male

DRUGS (1)
  1. DEPAKOTE 250MG [Suspect]
     Indication: MATERNAL EXPOSURE TIMING UNSPECIFIED

REACTIONS (21)
  - Cardiac murmur [Not Recovered/Not Resolved]
  - Activities of daily living impaired [Unknown]
  - Injury [Unknown]
  - Deformity [Unknown]
  - Pain [Unknown]
  - Anxiety [Unknown]
  - Emotional distress [Unknown]
  - Anhedonia [Unknown]
  - Life expectancy shortened [Unknown]
  - Social problem [Unknown]
  - Physical disability [Unknown]
  - Mental impairment [Unknown]
  - Congenital oral malformation [Not Recovered/Not Resolved]
  - Congenital pulmonary artery anomaly [Unknown]
  - Congenital pulmonary valve atresia [Not Recovered/Not Resolved]
  - Congenital anomaly [Unknown]
  - Heart disease congenital [Not Recovered/Not Resolved]
  - Economic problem [Unknown]
  - Loss of employment [Unknown]
  - Disturbance in attention [Not Recovered/Not Resolved]
  - Depression [Recovering/Resolving]
